FAERS Safety Report 18496291 (Version 1)
Quarter: 2020Q4

REPORT INFORMATION
  Report Type: Spontaneous
  Country: US (occurrence: US)
  Receive Date: 20201112
  Receipt Date: 20201112
  Transmission Date: 20210114
  Serious: Yes (Death)
  Sender: FDA-Public Use
  Company Number: None

PATIENT
  Sex: Male

DRUGS (15)
  1. OLMESARTAN [Concomitant]
     Active Substance: OLMESARTAN
  2. ALOGLIPTIN. [Concomitant]
     Active Substance: ALOGLIPTIN
  3. VALSARTAN. [Concomitant]
     Active Substance: VALSARTAN
  4. JARDIANCE [Concomitant]
     Active Substance: EMPAGLIFLOZIN
  5. ALLOPURINOL. [Concomitant]
     Active Substance: ALLOPURINOL
  6. POTASSIUM [Concomitant]
     Active Substance: POTASSIUM
  7. REPATHA [Suspect]
     Active Substance: EVOLOCUMAB
     Indication: HYPERLIPIDAEMIA
     Dosage: ?          QUANTITY:2 ML MILLILITRE(S);?
     Route: 058
     Dates: start: 20190606, end: 20201110
  8. MEXILETINE [Concomitant]
     Active Substance: MEXILETINE
  9. VITAMIN D3 [Concomitant]
     Active Substance: CHOLECALCIFEROL
  10. NITROGLYCERIN. [Concomitant]
     Active Substance: NITROGLYCERIN
  11. ASA [Concomitant]
     Active Substance: ASPIRIN
  12. FUROSEMID [Concomitant]
     Active Substance: FUROSEMIDE
  13. JANUVIA [Concomitant]
     Active Substance: SITAGLIPTIN PHOSPHATE
  14. COREG [Concomitant]
     Active Substance: CARVEDILOL
  15. PLAVIX [Concomitant]
     Active Substance: CLOPIDOGREL BISULFATE

REACTIONS (1)
  - Death [None]
